FAERS Safety Report 7090204-4 (Version None)
Quarter: 2010Q4

REPORT INFORMATION
  Report Type: 
  Country: None (occurrence: None)
  Receive Date: 20101109
  Receipt Date: 20101028
  Transmission Date: 20110411
  Serious: Yes (Hospitalization)
  Sender: FDA-Public Use
  Company Number: CA-ASTRAZENECA-2010SE40824

PATIENT
  Age: 78 Year
  Sex: Female

DRUGS (10)
  1. NEXIUM [Suspect]
     Indication: ABDOMINAL PAIN UPPER
     Dosage: 40 MG DAILY AM
     Route: 048
     Dates: start: 20030101, end: 20100824
  2. TRAMADOL HCL [Concomitant]
     Indication: ANALGESIC THERAPY
     Dosage: 4X DAILY
     Dates: start: 20090101
  3. GABAPENTIN [Concomitant]
     Indication: NEURALGIA
     Dosage: 300 MG PM
     Dates: start: 20100301
  4. DIOVAN [Concomitant]
     Indication: HYPERTENSION
     Dosage: 80 MG AM
  5. LYRICA [Concomitant]
     Indication: PAIN
     Dates: start: 20090101, end: 20100101
  6. LYRICA [Concomitant]
     Indication: MEMORY IMPAIRMENT
     Dates: start: 20090101, end: 20100101
  7. CLONAZEPAM [Concomitant]
     Indication: ANXIETY
     Dosage: 0.5 MG PM
  8. HYDROCORTISONE [Concomitant]
     Indication: URTICARIA
     Dosage: PRN EVERY 4 HOURS
     Dates: start: 20100801
  9. NOVOGESIC FORTE [Concomitant]
     Dosage: PRN EVERY 4-6 HRS
  10. ACETAMINOPHEN [Concomitant]
     Dosage: 325 MG DAILY PRN

REACTIONS (2)
  - FALL [None]
  - URTICARIA [None]
